FAERS Safety Report 13989360 (Version 1)
Quarter: 2017Q3

REPORT INFORMATION
  Report Type: Spontaneous
  Country: US (occurrence: US)
  Receive Date: 20170920
  Receipt Date: 20170920
  Transmission Date: 20171128
  Serious: No
  Sender: FDA-Public Use
  Company Number: US-EMD SERONO-8181677

PATIENT
  Sex: Male

DRUGS (2)
  1. REBIF [Suspect]
     Active Substance: INTERFERON BETA-1A
     Indication: MULTIPLE SCLEROSIS
  2. AMPYRA [Suspect]
     Active Substance: DALFAMPRIDINE
     Indication: MULTIPLE SCLEROSIS
     Route: 048

REACTIONS (6)
  - Disturbance in attention [Unknown]
  - Injection site erythema [Unknown]
  - Arthralgia [Unknown]
  - Injection site reaction [Unknown]
  - Mobility decreased [Unknown]
  - Influenza like illness [Unknown]
